FAERS Safety Report 19754999 (Version 1)
Quarter: 2021Q3

REPORT INFORMATION
  Report Type: Spontaneous
  Country: IN (occurrence: IN)
  Receive Date: 20210827
  Receipt Date: 20210827
  Transmission Date: 20211014
  Serious: Yes (Other)
  Sender: FDA-Public Use
  Company Number: IN-ELI_LILLY_AND_COMPANY-IN202108007944

PATIENT
  Age: 64 Year
  Sex: Female

DRUGS (2)
  1. ABEMACICLIB 150MG [Suspect]
     Active Substance: ABEMACICLIB
     Dosage: 100 MG, UNKNOWN
     Route: 065
  2. ABEMACICLIB 150MG [Suspect]
     Active Substance: ABEMACICLIB
     Indication: HORMONE RECEPTOR POSITIVE HER2 NEGATIVE BREAST CANCER
     Dosage: 150 MG, UNKNOWN
     Route: 065
     Dates: start: 201911

REACTIONS (4)
  - Diarrhoea [Unknown]
  - Metastases to bone [Unknown]
  - Neutropenia [Unknown]
  - Metastases to lymph nodes [Unknown]
